FAERS Safety Report 8449012-1 (Version None)
Quarter: 2012Q2

REPORT INFORMATION
  Report Type: 
  Country: None (occurrence: None)
  Receive Date: 20120619
  Receipt Date: 20120614
  Transmission Date: 20120825
  Serious: Yes (Other)
  Sender: FDA-Public Use
  Company Number: PHEH2012US011929

PATIENT
  Sex: Male

DRUGS (14)
  1. PLAVIX [Concomitant]
     Dosage: UNK UKN, UNK
  2. METOPROLOL SUCCINATE [Concomitant]
     Dosage: UNK UKN, UNK
  3. EXELON [Suspect]
     Indication: COGNITIVE DISORDER
     Dosage: 9.5 MG, DAILY
     Route: 062
  4. SIMVASTATIN [Concomitant]
     Dosage: UNK UKN, UNK
  5. ISOSORBIDE MONONITRATE [Concomitant]
     Dosage: UNK UKN, UNK
  6. ASPIRIN [Concomitant]
     Dosage: UNK UKN, UNK
  7. NEVANAC [Concomitant]
     Dosage: UNK UKN, UNK
  8. GLIMEPIRIDE [Concomitant]
     Dosage: UNK UKN, UNK
  9. NITROGLYCERIN [Concomitant]
     Dosage: UNK UKN, UNK
  10. AMLODIPINE [Concomitant]
     Dosage: UNK UKN, UNK
  11. AZATHIOPRINE [Concomitant]
     Dosage: UNK UKN, UNK
  12. HUMALOG [Concomitant]
     Dosage: UNK UKN, UNK
  13. ENALAPRIL MALEATE [Concomitant]
     Dosage: UNK UKN, UNK
  14. LANTUS [Concomitant]
     Dosage: UNK UKN, UNK

REACTIONS (5)
  - DEVICE RELATED INFECTION [None]
  - MYOCARDIAL INFARCTION [None]
  - DIABETES MELLITUS [None]
  - CEREBROVASCULAR ACCIDENT [None]
  - CATARACT [None]
